FAERS Safety Report 20671518 (Version 6)
Quarter: 2025Q3

REPORT INFORMATION
  Report Type: Spontaneous
  Country: US (occurrence: US)
  Receive Date: 20220404
  Receipt Date: 20250827
  Transmission Date: 20251020
  Serious: Yes (Other)
  Sender: AMGEN
  Company Number: US-AMGEN-USASP2022056295

PATIENT
  Sex: Male

DRUGS (8)
  1. OTEZLA [Suspect]
     Active Substance: APREMILAST
     Indication: Psoriasis
     Dosage: 30 MILLIGRAM, BID
     Route: 048
     Dates: start: 20210204
  2. ENBREL [Suspect]
     Active Substance: ETANERCEPT
     Indication: Product used for unknown indication
     Route: 065
  3. ATORVASTATIN [Concomitant]
     Active Substance: ATORVASTATIN
  4. FINASTERIDE [Concomitant]
     Active Substance: FINASTERIDE
  5. IBUPROFEN [Concomitant]
     Active Substance: IBUPROFEN
  6. METOPROLOL TARTRATE [Concomitant]
     Active Substance: METOPROLOL TARTRATE
  7. TAMSULOSIN [Concomitant]
     Active Substance: TAMSULOSIN
  8. ZEPBOUND [Concomitant]
     Active Substance: TIRZEPATIDE

REACTIONS (5)
  - Muscle rupture [Unknown]
  - Therapy non-responder [Unknown]
  - Joint noise [Unknown]
  - Pain [Unknown]
  - Product dose omission issue [Unknown]
